FAERS Safety Report 7068507-9 (Version None)
Quarter: 2010Q4

REPORT INFORMATION
  Report Type: 
  Country: None (occurrence: None)
  Receive Date: 20101028
  Receipt Date: 20101019
  Transmission Date: 20110411
  Serious: No
  Sender: FDA-Public Use
  Company Number: US-B.I. PHARMACEUTICALS,INC./RIDGEFIELD-2010-BP-10588BP

PATIENT
  Age: 46 Year
  Sex: Female
  Weight: 88.91 kg

DRUGS (4)
  1. MICARDIS [Suspect]
     Indication: HYPERTENSION
     Dosage: 40 MG
     Route: 048
     Dates: end: 20100818
  2. ADVAIR DISKUS 100/50 [Concomitant]
  3. SINGULAIR [Concomitant]
     Dosage: 10 MG
  4. SYNTHROID [Concomitant]
     Dosage: 112 MCG

REACTIONS (4)
  - ACTIVITIES OF DAILY LIVING IMPAIRED [None]
  - EXERCISE TOLERANCE DECREASED [None]
  - MUSCLE SPASMS [None]
  - SLEEP DISORDER [None]
